FAERS Safety Report 9941907 (Version 1)
Quarter: 2014Q1

REPORT INFORMATION
  Report Type: Spontaneous
  Country: US (occurrence: US)
  Receive Date: 20140303
  Receipt Date: 20140303
  Transmission Date: 20141002
  Serious: No
  Sender: FDA-Public Use
  Company Number: US-ABBVIE-13P-163-1040072-00

PATIENT
  Age: 41 Year
  Sex: Female

DRUGS (2)
  1. HUMIRA [Suspect]
     Indication: CROHN^S DISEASE
     Dates: start: 20130116, end: 20130116
  2. HUMIRA [Suspect]
     Dates: start: 20130117, end: 20130117

REACTIONS (2)
  - Butterfly rash [Unknown]
  - Nausea [Unknown]
